FAERS Safety Report 9937057 (Version 2)
Quarter: 2014Q2

REPORT INFORMATION
  Report Type: Spontaneous
  Country: US (occurrence: None)
  Receive Date: 20140122
  Receipt Date: 20140425
  Transmission Date: 20141212
  Serious: No
  Sender: FDA-Public Use
  Company Number: AP356-00295-SPO-US

PATIENT
  Age: 58 Year
  Sex: Female
  Weight: 114 kg

DRUGS (8)
  1. BELVIQ [Suspect]
     Indication: OBESITY
     Route: 048
     Dates: start: 20131115, end: 20131130
  2. LISINOPRIL (LISINOPRIL) [Concomitant]
  3. INSULIN (INSULIN) [Concomitant]
  4. SIMVASTATIN (SIMVASTATIN) [Concomitant]
  5. LEVOTHYROXINE (LEVOTHYROXINE) [Concomitant]
  6. FLUOXETINE (FLUOXETINE) [Concomitant]
  7. FENOFIBRATE (FENOFIBRATE) [Concomitant]
  8. OXYBUTYNIN [Concomitant]

REACTIONS (6)
  - Muscular weakness [None]
  - Constipation [None]
  - Myalgia [None]
  - Limb discomfort [None]
  - Myalgia [None]
  - Fatigue [None]
